FAERS Safety Report 23550291 (Version 1)
Quarter: 2024Q1

REPORT INFORMATION
  Report Type: Spontaneous
  Country: US (occurrence: None)
  Receive Date: 20240221
  Receipt Date: 20240221
  Transmission Date: 20240410
  Serious: Yes (Other)
  Sender: FDA-Public Use
  Company Number: None

PATIENT
  Sex: Female

DRUGS (1)
  1. NUCALA [Suspect]
     Active Substance: MEPOLIZUMAB
     Indication: Asthma
     Dosage: OTHER QUANTITY : INJECT 1 PEN;?FREQUENCY : MONTHLY;?
     Route: 058
     Dates: start: 20220302

REACTIONS (3)
  - Asthma [None]
  - Quality of life decreased [None]
  - Wheezing [None]
